FAERS Safety Report 17534923 (Version 7)
Quarter: 2020Q4

REPORT INFORMATION
  Report Type: Spontaneous
  Country: US (occurrence: US)
  Receive Date: 20200312
  Receipt Date: 20201118
  Transmission Date: 20210113
  Serious: Yes (Other)
  Sender: FDA-Public Use
  Company Number: US-AKCEA THERAPEUTICS-2020IS001004

PATIENT
  Age: 71 Year
  Sex: Male

DRUGS (3)
  1. ISSD (INTEGRATED SYRINGE SAFETY DEVICE) [Suspect]
     Active Substance: DEVICE
  2. TEGSEDI [Suspect]
     Active Substance: INOTERSEN SODIUM
     Indication: HEREDITARY NEUROPATHIC AMYLOIDOSIS
     Route: 058
  3. TEGSEDI [Suspect]
     Active Substance: INOTERSEN SODIUM
     Route: 058

REACTIONS (9)
  - Glomerular filtration rate decreased [Not Recovered/Not Resolved]
  - Urinary casts [Unknown]
  - Renal impairment [Not Recovered/Not Resolved]
  - Protein urine present [Unknown]
  - Urine leukocyte esterase positive [Unknown]
  - Platelet count abnormal [Unknown]
  - Pyuria [Unknown]
  - Drug monitoring procedure incorrectly performed [Recovered/Resolved]
  - Urine protein/creatinine ratio increased [Not Recovered/Not Resolved]

NARRATIVE: CASE EVENT DATE: 20200825
